FAERS Safety Report 5365570-8 (Version None)
Quarter: 2007Q2

REPORT INFORMATION
  Report Type: 
  Country: None (occurrence: None)
  Receive Date: 20070621
  Receipt Date: 20070130
  Transmission Date: 20071010
  Serious: Yes (Life-Threatening)
  Sender: FDA-Public Use
  Company Number: PL-ASTRAZENECA-2006SE06594

PATIENT
  Age: 33 Year
  Sex: Female
  Weight: 91 kg

DRUGS (4)
  1. MARCAINE [Suspect]
     Indication: SPINAL ANAESTHESIA
  2. MARCAINE [Suspect]
     Indication: CAESAREAN SECTION
  3. CEFTRIAXONE [Suspect]
     Route: 042
  4. OXYTOCIN [Suspect]
     Route: 042

REACTIONS (2)
  - ANAPHYLACTIC SHOCK [None]
  - HYPOTENSION [None]
